FAERS Safety Report 21937802 (Version 1)
Quarter: 2023Q1

REPORT INFORMATION
  Report Type: Report from Study
  Country: US (occurrence: US)
  Receive Date: 20230201
  Receipt Date: 20230201
  Transmission Date: 20230417
  Serious: Yes (Other)
  Sender: FDA-Public Use
  Company Number: US-JAZZ-2023-US-002111

PATIENT
  Sex: Female

DRUGS (1)
  1. EPIDIOLEX [Suspect]
     Active Substance: CANNABIDIOL
     Indication: Product used for unknown indication
     Dosage: 4.5 UNKNOWN, BID
     Route: 048

REACTIONS (3)
  - Joint dislocation [Recovering/Resolving]
  - Seizure [Recovering/Resolving]
  - Back pain [Recovering/Resolving]
